FAERS Safety Report 9933646 (Version 2)
Quarter: 2014Q1

REPORT INFORMATION
  Report Type: Report from Study
  Country: US (occurrence: US)
  Receive Date: 20140228
  Receipt Date: 20140228
  Transmission Date: 20141002
  Serious: No
  Sender: FDA-Public Use
  Company Number: US-MYLANLABS-2013S1027691

PATIENT
  Age: 51 Year
  Sex: Female
  Weight: 55.34 kg

DRUGS (2)
  1. AMNESTEEM CAPSULES [Suspect]
     Indication: ACNE
     Dates: start: 20130906, end: 20131010
  2. AMNESTEEM CAPSULES [Suspect]
     Indication: ACNE
     Dates: start: 20131009, end: 20131010

REACTIONS (2)
  - Haematochezia [Recovered/Resolved]
  - Gastrointestinal disorder [Not Recovered/Not Resolved]
